FAERS Safety Report 9090133 (Version 1)
Quarter: 2013Q1

REPORT INFORMATION
  Report Type: Spontaneous
  Country: US (occurrence: US)
  Receive Date: 20130201
  Receipt Date: 20130201
  Transmission Date: 20140127
  Serious: Yes (Hospitalization)
  Sender: FDA-Public Use
  Company Number: US-ASTRAZENECA-2013SE06202

PATIENT
  Age: 23981 Day
  Sex: Male

DRUGS (2)
  1. BRILINTA [Suspect]
     Route: 048
     Dates: start: 20130122, end: 20130122
  2. ASPIRIN [Suspect]
     Route: 065
     Dates: start: 20130122

REACTIONS (3)
  - Thrombosis in device [Recovering/Resolving]
  - Chest pain [Recovering/Resolving]
  - Electrocardiogram ST segment elevation [Recovering/Resolving]
